FAERS Safety Report 20667183 (Version 1)
Quarter: 2022Q2

REPORT INFORMATION
  Report Type: Spontaneous
  Country: US (occurrence: US)
  Receive Date: 20220404
  Receipt Date: 20220404
  Transmission Date: 20220721
  Serious: Yes (Hospitalization)
  Sender: FDA-Public Use
  Company Number: US-CIPLA LTD.-2022US02041

PATIENT

DRUGS (9)
  1. CYCLOPHOSPHAMIDE [Suspect]
     Active Substance: CYCLOPHOSPHAMIDE
     Indication: Triple negative breast cancer
     Dosage: UNK, FOUR CYCLES
     Route: 065
     Dates: start: 2021
  2. CYCLOPHOSPHAMIDE [Suspect]
     Active Substance: CYCLOPHOSPHAMIDE
     Dosage: UNK, CHEMOTHERAPY DOSES WERE DECREASED
     Route: 065
  3. CARBOPLATIN [Suspect]
     Active Substance: CARBOPLATIN
     Indication: Triple negative breast cancer
     Dosage: UNK, TWELVE WEEKLY DOSES
     Route: 065
     Dates: start: 2021
  4. PEMBROLIZUMAB [Suspect]
     Active Substance: PEMBROLIZUMAB
     Indication: Triple negative breast cancer
     Dosage: UNK, ADMINISTERED ON DAYS 8 AND 22
     Route: 065
     Dates: start: 2021
  5. DOXORUBICIN [Suspect]
     Active Substance: DOXORUBICIN
     Indication: Triple negative breast cancer
     Dosage: UNK, 4 CYCLES
     Route: 065
     Dates: start: 2021
  6. PEGFILGRASTIM [Suspect]
     Active Substance: PEGFILGRASTIM
     Indication: Triple negative breast cancer
     Dosage: UNK
     Route: 065
     Dates: start: 2021
  7. PACLITAXEL [Suspect]
     Active Substance: PACLITAXEL
     Indication: Triple negative breast cancer
     Dosage: UNK, TWELVE WEEKLY DOSES
     Route: 065
     Dates: start: 2021
  8. PFIZER-BIONTECH COVID-19 VACCINE [Suspect]
     Active Substance: TOZINAMERAN
     Indication: COVID-19 immunisation
     Dosage: UNK, TWO-DOSE
     Route: 065
     Dates: start: 2021, end: 2021
  9. DECITABINE [Concomitant]
     Active Substance: DECITABINE
     Indication: Triple negative breast cancer
     Dosage: UNK, DOSE 4 ADMINISTERED ON DAYS 1-5
     Route: 065
     Dates: start: 2021

REACTIONS (1)
  - Vasculitis [Recovered/Resolved]

NARRATIVE: CASE EVENT DATE: 20210501
